FAERS Safety Report 6452678-9 (Version None)
Quarter: 2009Q4

REPORT INFORMATION
  Report Type: 
  Country: None (occurrence: None)
  Receive Date: 20091124
  Receipt Date: 20091118
  Transmission Date: 20100525
  Serious: Yes (Other)
  Sender: FDA-Public Use
  Company Number: US-ELI_LILLY_AND_COMPANY-US200911005033

PATIENT
  Sex: Male

DRUGS (7)
  1. HUMALOG MIX 75/25 [Suspect]
  2. HUMALOG MIX 75/25 [Suspect]
     Indication: DIABETES MELLITUS
     Dosage: 23 U, EACH MORNING
  3. HUMALOG MIX 75/25 [Suspect]
     Dosage: 20 U, EACH EVENING
  4. COZAAR [Concomitant]
  5. ZOCOR [Concomitant]
  6. FLOMAX [Concomitant]
  7. CELEBREX [Concomitant]

REACTIONS (10)
  - ASTHENIA [None]
  - DENTAL IMPLANTATION [None]
  - DYSPHONIA [None]
  - FALL [None]
  - FRACTURED COCCYX [None]
  - HYPOGLYCAEMIA [None]
  - HYPOGLYCAEMIC UNCONSCIOUSNESS [None]
  - MOBILITY DECREASED [None]
  - PRURITUS [None]
  - WRIST FRACTURE [None]
